FAERS Safety Report 24955843 (Version 4)
Quarter: 2025Q3

REPORT INFORMATION
  Report Type: Spontaneous
  Country: US (occurrence: US)
  Receive Date: 20250211
  Receipt Date: 20250828
  Transmission Date: 20251021
  Serious: No
  Sender: SANOFI AVENTIS
  Company Number: US-SA-2025SA040612

PATIENT
  Age: 62 Year
  Sex: Female

DRUGS (1)
  1. DUPIXENT [Suspect]
     Active Substance: DUPILUMAB
     Indication: Neurodermatitis
     Dosage: 300 MG, QOW
     Route: 058

REACTIONS (13)
  - Dry mouth [Recovering/Resolving]
  - Blood glucose increased [Unknown]
  - Hypertension [Unknown]
  - Pruritus [Unknown]
  - Therapeutic response shortened [Unknown]
  - Urticaria [Unknown]
  - Headache [Recovering/Resolving]
  - Rash [Recovered/Resolved]
  - Injection site reaction [Unknown]
  - Injection site erythema [Recovering/Resolving]
  - Dry eye [Recovering/Resolving]
  - Inappropriate schedule of product administration [Unknown]
  - Incorrect dose administered [Unknown]
